FAERS Safety Report 5891646-2 (Version None)
Quarter: 2008Q3

REPORT INFORMATION
  Report Type: 
  Country: None (occurrence: None)
  Receive Date: 20080922
  Receipt Date: 20080804
  Transmission Date: 20090109
  Serious: Yes (Other)
  Sender: FDA-Public Use
  Company Number: US-PURDUE-USA_2008_0034707

PATIENT
  Sex: Male

DRUGS (3)
  1. OXYCONTIN [Suspect]
     Indication: PAIN
     Dosage: 20 MG, QID
     Route: 048
     Dates: start: 19990201, end: 20040101
  2. DEMEROL [Concomitant]
     Indication: PAIN
     Dosage: UNK MG, UNK
     Route: 048
     Dates: start: 19990101
  3. OXYCODONE HCL [Concomitant]
     Indication: PAIN
     Dosage: UNK MG, UNK
     Route: 048

REACTIONS (6)
  - DEPRESSION [None]
  - FALL [None]
  - MENTAL IMPAIRMENT [None]
  - MENTAL STATUS CHANGES [None]
  - NERVE INJURY [None]
  - SUICIDAL IDEATION [None]
